FAERS Safety Report 8535879-5 (Version None)
Quarter: 2012Q3

REPORT INFORMATION
  Report Type: 
  Country: None (occurrence: None)
  Receive Date: 20120725
  Receipt Date: 20120718
  Transmission Date: 20120928
  Serious: Yes (Hospitalization)
  Sender: FDA-Public Use
  Company Number: PHHY2012FR062362

PATIENT
  Age: 39 Year
  Sex: Male

DRUGS (1)
  1. TRILEPTAL [Suspect]
     Indication: EPILEPSY
     Dosage: 600 MG, BID
     Route: 048
     Dates: start: 20120201

REACTIONS (7)
  - PETIT MAL EPILEPSY [None]
  - INAPPROPRIATE ANTIDIURETIC HORMONE SECRETION [None]
  - CONFUSIONAL STATE [None]
  - EPILEPSY [None]
  - HYPONATRAEMIA [None]
  - POLYURIA [None]
  - HYPERKALIURIA [None]
